FAERS Safety Report 9014742 (Version 1)
Quarter: 2013Q1

REPORT INFORMATION
  Report Type: Spontaneous
  Country: DE (occurrence: DE)
  Receive Date: 20130115
  Receipt Date: 20130115
  Transmission Date: 20140127
  Serious: Yes (Life-Threatening)
  Sender: FDA-Public Use
  Company Number: DE-UCBSA-074676

PATIENT
  Sex: Female

DRUGS (1)
  1. KEPPRA [Suspect]
     Indication: EPILEPSY
     Dosage: UNKNOWN DOSE; FOR ALMOST THREE YEARS
     Dates: start: 2010

REACTIONS (3)
  - Apnoea [Unknown]
  - Abnormal sleep-related event [Unknown]
  - Hypersomnia [Unknown]
